FAERS Safety Report 23586472 (Version 1)
Quarter: 2024Q1

REPORT INFORMATION
  Report Type: Spontaneous
  Country: US (occurrence: None)
  Receive Date: 20240301
  Receipt Date: 20240301
  Transmission Date: 20240410
  Serious: No
  Sender: FDA-Public Use
  Company Number: None

PATIENT
  Sex: Female

DRUGS (1)
  1. REMODULIN [Suspect]
     Active Substance: TREPROSTINIL
     Indication: Pulmonary arterial hypertension
     Dosage: 135.2NG/KG/MIN CONTINUOUS SQ
     Route: 058
     Dates: start: 202103

REACTIONS (6)
  - Infusion site pain [None]
  - Infusion site swelling [None]
  - Migraine [None]
  - Drug ineffective [None]
  - Device defective [None]
  - Infusion site discharge [None]
